FAERS Safety Report 6074127-5 (Version None)
Quarter: 2009Q1

REPORT INFORMATION
  Report Type: 
  Country: None (occurrence: None)
  Receive Date: 20090211
  Receipt Date: 20090209
  Transmission Date: 20090719
  Serious: Yes (Other)
  Sender: FDA-Public Use
  Company Number: B0558204A

PATIENT
  Age: 8 Year
  Sex: Female

DRUGS (2)
  1. RELENZA [Suspect]
     Indication: INFLUENZA
     Route: 055
     Dates: start: 20090203
  2. ZOVIRAX [Suspect]
     Indication: VARICELLA
     Route: 048

REACTIONS (7)
  - ABNORMAL BEHAVIOUR [None]
  - CYANOSIS [None]
  - DEPRESSED LEVEL OF CONSCIOUSNESS [None]
  - EYE ROLLING [None]
  - FALL [None]
  - LOSS OF CONSCIOUSNESS [None]
  - SOMNOLENCE [None]
